FAERS Safety Report 23167031 (Version 1)
Quarter: 2023Q4

REPORT INFORMATION
  Report Type: Spontaneous
  Country: CN (occurrence: None)
  Receive Date: 20231109
  Receipt Date: 20231109
  Transmission Date: 20240109
  Serious: Yes (Other)
  Sender: FDA-Public Use
  Company Number: 2023A251583

PATIENT
  Age: 20871 Day
  Sex: Male
  Weight: 75 kg

DRUGS (2)
  1. OSIMERTINIB MESYLATE [Suspect]
     Active Substance: OSIMERTINIB MESYLATE
     Indication: Palliative care
     Route: 048
     Dates: start: 20230616, end: 20230616
  2. PEMETREXED [Suspect]
     Active Substance: PEMETREXED
     Indication: Palliative care
     Route: 041
     Dates: start: 20230616, end: 20230616

REACTIONS (1)
  - Myelosuppression [Recovering/Resolving]

NARRATIVE: CASE EVENT DATE: 20230623
